FAERS Safety Report 18097499 (Version 6)
Quarter: 2021Q2

REPORT INFORMATION
  Report Type: Other
  Country: US (occurrence: US)
  Receive Date: 20200730
  Receipt Date: 20210427
  Transmission Date: 20210717
  Serious: Yes (Hospitalization, Other)
  Sender: FDA-Public Use
  Company Number: US-ROCHE-2650572

PATIENT
  Sex: Female

DRUGS (2)
  1. COTELLIC [Suspect]
     Active Substance: COBIMETINIB
     Indication: COLON CANCER
     Dosage: TAKE 3 TABLET(S) BY MOUTH DAILY FOR 21 DAYS
     Route: 048
  2. COTELLIC [Suspect]
     Active Substance: COBIMETINIB
     Indication: METASTASES TO LUNG
     Dosage: TAKE 3 TABLET(S) BY MOUTH DAILY FOR 21 DAYS
     Route: 048

REACTIONS (8)
  - Pneumonia [Unknown]
  - Spinal fracture [Unknown]
  - Off label use [Unknown]
  - Rash pruritic [Unknown]
  - Rash [Unknown]
  - Pruritus [Unknown]
  - Fatigue [Unknown]
  - Incorrect dose administered [Unknown]
